FAERS Safety Report 6364975-6 (Version None)
Quarter: 2009Q3

REPORT INFORMATION
  Report Type: 
  Country: None (occurrence: None)
  Receive Date: 20090919
  Receipt Date: 20090806
  Transmission Date: 20100115
  Serious: No
  Sender: FDA-Public Use
  Company Number: US-ABBOTT-09P-163-0589680-00

PATIENT
  Sex: Female

DRUGS (1)
  1. HUMIRA [Suspect]
     Indication: ANKYLOSING SPONDYLITIS
     Dates: start: 20090702

REACTIONS (6)
  - FATIGUE [None]
  - MUSCLE SPASMS [None]
  - PAIN IN EXTREMITY [None]
  - RASH MACULAR [None]
  - SKIN SWELLING [None]
  - SKIN WARM [None]
